FAERS Safety Report 16688934 (Version 1)
Quarter: 2019Q3

REPORT INFORMATION
  Report Type: Spontaneous
  Country: SI (occurrence: SI)
  Receive Date: 20190809
  Receipt Date: 20190809
  Transmission Date: 20191004
  Serious: Yes (Hospitalization, Other)
  Sender: FDA-Public Use
  Company Number: SI-MYLANLABS-2019M1074109

PATIENT
  Age: 84 Year
  Sex: Male

DRUGS (7)
  1. XARELTO [Suspect]
     Active Substance: RIVAROXABAN
     Indication: ATRIAL FIBRILLATION
     Dosage: 15 MG, QD
     Dates: start: 201806, end: 201901
  2. ATORIS [Concomitant]
     Active Substance: ATORVASTATIN CALCIUM
     Dosage: 20 MG, HS
  3. LASIX [Concomitant]
     Active Substance: FUROSEMIDE
     Dosage: 30 MG, OM
  4. CLOPIDOGREL [Suspect]
     Active Substance: CLOPIDOGREL BISULFATE
     Indication: PRODUCT USED FOR UNKNOWN INDICATION
     Dosage: 75 MG, QD
     Dates: start: 201806, end: 201901
  5. TRIPLIXAM [Concomitant]
     Active Substance: AMLODIPINE BESYLATE\INDAPAMIDE\PERINDOPRIL ARGININE
     Dosage: 1 DF, OM
  6. GLUCOPHAGE [Concomitant]
     Active Substance: METFORMIN HYDROCHLORIDE
     Dosage: 500 MG, BID
  7. XARELTO [Suspect]
     Active Substance: RIVAROXABAN
     Indication: ATRIAL FIBRILLATION
     Dosage: UNK
     Dates: end: 201806

REACTIONS (19)
  - Rectal ulcer [Unknown]
  - Chest pain [Unknown]
  - Transaminases increased [Unknown]
  - Dizziness [Unknown]
  - Benign anorectal neoplasm [Unknown]
  - Gastrooesophageal reflux disease [Unknown]
  - Acute myocardial infarction [Unknown]
  - Haematochezia [Unknown]
  - Gastritis erosive [Unknown]
  - Occult blood positive [Unknown]
  - Liver disorder [Unknown]
  - Pallor [Unknown]
  - Microcytic anaemia [Unknown]
  - Normocytic anaemia [Unknown]
  - Acute coronary syndrome [Unknown]
  - Hepatic congestion [Unknown]
  - Leukocytosis [Unknown]
  - Dyspnoea [Unknown]
  - Oedema peripheral [Unknown]

NARRATIVE: CASE EVENT DATE: 201805
